FAERS Safety Report 8609638-9 (Version None)
Quarter: 2012Q3

REPORT INFORMATION
  Report Type: 
  Country: None (occurrence: None)
  Receive Date: 20120810
  Receipt Date: 20120810
  Transmission Date: 20120928
  Serious: No
  Sender: FDA-Public Use
  Company Number: None

PATIENT
  Sex: Male

DRUGS (1)
  1. HUMIRA 40 MG PER ABBOTT Q WEEK SUBCUTANEOUS [Suspect]
     Dosage: 40 MG QWEE, SUBCUTANEOUS
     Route: 058
     Dates: start: 20110203

REACTIONS (1)
  - PNEUMONIA [None]
